FAERS Safety Report 23946507 (Version 1)
Quarter: 2024Q2

REPORT INFORMATION
  Report Type: Spontaneous
  Country: US (occurrence: US)
  Receive Date: 20240606
  Receipt Date: 20240606
  Transmission Date: 20240715
  Serious: No
  Sender: FDA-Public Use
  Company Number: ae002US24

PATIENT
  Age: 65 Year
  Sex: Female

DRUGS (2)
  1. ASCLERA [Suspect]
     Active Substance: POLIDOCANOL
     Indication: Product used for unknown indication
     Dates: start: 2024
  2. Coban [Concomitant]

REACTIONS (3)
  - Adverse drug reaction [Unknown]
  - Wound [Unknown]
  - Ulcer [Unknown]
